FAERS Safety Report 8231733-7 (Version None)
Quarter: 2012Q1

REPORT INFORMATION
  Report Type: 
  Country: None (occurrence: None)
  Receive Date: 20120323
  Receipt Date: 20120312
  Transmission Date: 20120608
  Serious: Yes (Hospitalization)
  Sender: FDA-Public Use
  Company Number: FR-BRISTOL-MYERS SQUIBB COMPANY-16462368

PATIENT
  Age: 82 Year
  Sex: Male

DRUGS (12)
  1. ACETAMINOPHEN [Suspect]
     Dosage: TABS
     Route: 048
     Dates: end: 20120128
  2. ESIDRIX [Concomitant]
  3. ASPIRIN [Concomitant]
  4. AMLODIPINE BESYLATE [Concomitant]
  5. AMOXICILLIN AND CLAVULANATE POTASSIUM [Suspect]
     Indication: LUNG INFECTION
     Route: 048
     Dates: start: 20120123, end: 20120128
  6. ATORVASTATIN [Suspect]
     Indication: HYPERCHOLESTEROLAEMIA
     Route: 048
     Dates: end: 20120128
  7. PLAVIX [Concomitant]
  8. VENTOLIN [Concomitant]
  9. INSULIN HUMAN [Concomitant]
  10. CLAFORAN [Concomitant]
  11. GLUCOPHAGE [Suspect]
     Indication: TYPE 2 DIABETES MELLITUS
     Route: 048
     Dates: end: 20120128
  12. OLMESARTAN MEDOXOMIL [Suspect]
     Indication: HYPERTENSION
     Route: 048
     Dates: start: 20120101, end: 20120128

REACTIONS (4)
  - LIVER INJURY [None]
  - JAUNDICE [None]
  - LUNG INFECTION [None]
  - CHRONIC OBSTRUCTIVE PULMONARY DISEASE [None]
